FAERS Safety Report 6211333-0 (Version None)
Quarter: 2009Q2

REPORT INFORMATION
  Report Type: 
  Country: None (occurrence: None)
  Receive Date: 20090528
  Receipt Date: 20090520
  Transmission Date: 20091009
  Serious: Yes (Death)
  Sender: FDA-Public Use
  Company Number: 2009-197130-NL

PATIENT
  Age: 46 Year
  Sex: Female

DRUGS (9)
  1. MIRTAZAPINE [Suspect]
     Dosage: 30 MG ORAL
     Route: 048
     Dates: end: 20081108
  2. VENLAFAXINE HYDROCHLORIDE [Suspect]
     Dosage: 225 MG ORAL
     Route: 048
     Dates: end: 20081108
  3. OLANZAPINE [Suspect]
     Dosage: 15 MG/10 MG/15 MG ORAL
     Route: 048
     Dates: end: 20081023
  4. OLANZAPINE [Suspect]
     Dosage: 15 MG/10 MG/15 MG ORAL
     Route: 048
     Dates: start: 20081024, end: 20081031
  5. OLANZAPINE [Suspect]
     Dosage: 15 MG/10 MG/15 MG ORAL
     Route: 048
     Dates: start: 20081101, end: 20081108
  6. LEVOTHYROXINE SODIUM [Suspect]
     Indication: HYPOTHYROIDISM
     Dosage: 0.05 MG ORAL
     Route: 048
     Dates: start: 20081103, end: 20081108
  7. LITHIUM CARBONATE [Suspect]
     Dosage: 225 MG/ 450 MG/ 675 MG ORAL
     Route: 048
     Dates: start: 20081104, end: 20081105
  8. LITHIUM CARBONATE [Suspect]
     Dosage: 225 MG/ 450 MG/ 675 MG ORAL
     Route: 048
     Dates: start: 20081106, end: 20081107
  9. LITHIUM CARBONATE [Suspect]
     Dosage: 225 MG/ 450 MG/ 675 MG ORAL
     Route: 048
     Dates: start: 20081108, end: 20081108

REACTIONS (1)
  - COMPLETED SUICIDE [None]
